FAERS Safety Report 9842664 (Version 2)
Quarter: 2014Q1

REPORT INFORMATION
  Report Type: Spontaneous
  Country: US (occurrence: US)
  Receive Date: 20140124
  Receipt Date: 20140130
  Transmission Date: 20141002
  Serious: Yes (Other)
  Sender: FDA-Public Use
  Company Number: CHPA2014US001259

PATIENT
  Age: 75 Year
  Sex: Male

DRUGS (3)
  1. PREVACID 24HR 15MG [Suspect]
     Indication: OESOPHAGEAL DISORDER
     Dosage: 15 MG, QD
     Route: 048
  2. PREVACID 24HR 15MG [Suspect]
     Indication: OFF LABEL USE
  3. NEXUM [Concomitant]
     Dosage: UNK

REACTIONS (2)
  - Tooth infection [Recovered/Resolved]
  - Incorrect drug administration duration [Unknown]
